FAERS Safety Report 9259677 (Version 2)
Quarter: 2013Q2

REPORT INFORMATION
  Report Type: Report from Study
  Country: BE (occurrence: BE)
  Receive Date: 20130429
  Receipt Date: 20130517
  Transmission Date: 20140414
  Serious: Yes (Hospitalization)
  Sender: FDA-Public Use
  Company Number: BE-BIOGENIDEC-2013BI036941

PATIENT
  Age: 40 Year
  Sex: Female

DRUGS (1)
  1. TYSABRI [Suspect]
     Indication: RELAPSING-REMITTING MULTIPLE SCLEROSIS
     Route: 042
     Dates: start: 20121007

REACTIONS (1)
  - Gastritis [Recovered/Resolved]
